FAERS Safety Report 10071126 (Version 1)
Quarter: 2014Q2

REPORT INFORMATION
  Report Type: Spontaneous
  Country: US (occurrence: US)
  Receive Date: 20140410
  Receipt Date: 20140410
  Transmission Date: 20141212
  Serious: Yes (Other)
  Sender: FDA-Public Use
  Company Number: US-BRISTOL-MYERS SQUIBB COMPANY-19180983

PATIENT
  Age: 64 Year
  Sex: Male

DRUGS (1)
  1. ETOPOPHOS [Suspect]
     Indication: NEOPLASM MALIGNANT
     Dates: start: 201302, end: 201307

REACTIONS (1)
  - Malignant neoplasm progression [Unknown]
